FAERS Safety Report 26169609 (Version 1)
Quarter: 2025Q4

REPORT INFORMATION
  Report Type: Spontaneous
  Country: US (occurrence: None)
  Receive Date: 20251216
  Receipt Date: 20251216
  Transmission Date: 20260117
  Serious: No
  Sender: FDA-CTU
  Company Number: None

PATIENT
  Age: 89 Year
  Sex: Female

DRUGS (13)
  1. JAKAFI [Suspect]
     Active Substance: RUXOLITINIB
     Indication: Polycythaemia vera
     Dosage: FREQUENCY : DAILY;
     Route: 048
     Dates: start: 20190321
  2. ALIGN [Concomitant]
     Active Substance: BIFIDOBACTERIUM LONGUM SUBSP. INFANTIS
  3. ASPIRIN [Concomitant]
     Active Substance: ASPIRIN
  4. LACTULOSE [Concomitant]
     Active Substance: LACTULOSE
  5. LATANOPROST [Concomitant]
     Active Substance: LATANOPROST
  6. CYTOMEL [Concomitant]
     Active Substance: LIOTHYRONINE SODIUM
  7. LEVOTHYROXINE [Concomitant]
     Active Substance: LEVOTHYROXINE
  8. METOPROLOL [Concomitant]
     Active Substance: METOPROLOL
  9. OLMESARTAN [Concomitant]
     Active Substance: OLMESARTAN
  10. PLAVIX [Concomitant]
     Active Substance: CLOPIDOGREL BISULFATE
  11. POTASSIUM [Concomitant]
     Active Substance: POTASSIUM
  12. TORSEMIDE [Concomitant]
     Active Substance: TORSEMIDE
  13. VITAMIN D [Concomitant]
     Active Substance: VITAMIN D NOS

REACTIONS (9)
  - Weight decreased [None]
  - Heart valve incompetence [None]
  - Atrial fibrillation [None]
  - Cough [None]
  - Platelet count decreased [None]
  - Haematocrit decreased [None]
  - Therapy interrupted [None]
  - Body height decreased [None]
  - Osteoporosis [None]

NARRATIVE: CASE EVENT DATE: 20251211
